FAERS Safety Report 7211579-9 (Version None)
Quarter: 2011Q1

REPORT INFORMATION
  Report Type: 
  Country: None (occurrence: None)
  Receive Date: 20110105
  Receipt Date: 20101231
  Transmission Date: 20110831
  Serious: No
  Sender: FDA-Public Use
  Company Number: US-PFIZER INC-2011000019

PATIENT
  Sex: Female

DRUGS (2)
  1. CELEBREX [Suspect]
     Indication: ARTHRITIS
     Dosage: UNK
     Dates: start: 20101201
  2. LODINE [Concomitant]
     Dosage: UNK

REACTIONS (2)
  - UPPER RESPIRATORY TRACT CONGESTION [None]
  - MUCOUS MEMBRANE DISORDER [None]
